FAERS Safety Report 8511006-5 (Version None)
Quarter: 2012Q3

REPORT INFORMATION
  Report Type: 
  Country: None (occurrence: None)
  Receive Date: 20120703
  Receipt Date: 20120622
  Transmission Date: 20120928
  Serious: Yes (Hospitalization)
  Sender: FDA-Public Use
  Company Number: AUR-APL-2012-02813

PATIENT
  Age: 85 Year
  Sex: Female

DRUGS (6)
  1. OMEPRAZOLE [Suspect]
     Indication: GASTROINTESTINAL DISORDER
     Dosage: 40MG/DAY, ORAL
     Route: 048
     Dates: end: 20120308
  2. CITALOPRAM HYDROBROMIDE [Suspect]
     Indication: DEPRESSION
     Dosage: 20MG/DAY, ORAL
     Route: 048
     Dates: end: 20120308
  3. RAMIPRIL [Suspect]
     Indication: HYPERTENSION
     Dosage: 2.5MG/DAY, ORAL
     Route: 048
  4. SIMVASTATIN [Concomitant]
  5. LEVOTHYROXINE SODIUM [Suspect]
  6. METOPROLOL TARTRATE [Suspect]
     Indication: HYPERTENSION
     Dosage: 50MG/DAY, ORAL
     Route: 048
     Dates: end: 20120308

REACTIONS (2)
  - GENERAL PHYSICAL HEALTH DETERIORATION [None]
  - HYPONATRAEMIA [None]
